FAERS Safety Report 11376542 (Version 1)
Quarter: 2015Q3

REPORT INFORMATION
  Report Type: Spontaneous
  Country: US (occurrence: US)
  Receive Date: 20150813
  Receipt Date: 20150813
  Transmission Date: 20151125
  Serious: Yes (Hospitalization, Other)
  Sender: FDA-Public Use
  Company Number: US-TEVA-583612USA

PATIENT
  Sex: Female

DRUGS (2)
  1. AMPHETAMINE W/DEXTROAMPHETAMINE [Suspect]
     Active Substance: AMPHETAMINE SULFATE\DEXTROAMPHETAMINE
     Indication: ATTENTION DEFICIT/HYPERACTIVITY DISORDER
     Route: 065
  2. AMPHETAMINE W/DEXTROAMPHETAMINE [Suspect]
     Active Substance: AMPHETAMINE SULFATE\DEXTROAMPHETAMINE
     Indication: DEPRESSION

REACTIONS (16)
  - Overdose [Unknown]
  - Diarrhoea [Unknown]
  - Depression [Unknown]
  - Restlessness [Unknown]
  - Drug dependence [Unknown]
  - Pruritus [Unknown]
  - Product use issue [Unknown]
  - Nervousness [Unknown]
  - Hunger [Unknown]
  - Psychotic disorder [Unknown]
  - Mental disorder [Unknown]
  - Depressed mood [Unknown]
  - Hyperphagia [Unknown]
  - Suicidal ideation [Unknown]
  - Homicidal ideation [Unknown]
  - Vision blurred [Unknown]
